FAERS Safety Report 20020319 (Version 2)
Quarter: 2021Q4

REPORT INFORMATION
  Report Type: Spontaneous
  Country: JP (occurrence: JP)
  Receive Date: 20211101
  Receipt Date: 20211122
  Transmission Date: 20220303
  Serious: Yes (Hospitalization, Other)
  Sender: FDA-Public Use
  Company Number: JP-UCBJ-CD202108830UCBPHAPROD

PATIENT
  Age: 4 Month
  Sex: Female

DRUGS (4)
  1. LEVETIRACETAM [Suspect]
     Active Substance: LEVETIRACETAM
     Indication: Epilepsy
     Dosage: 30 MILLIGRAM/KILOGRAM/DAY
     Route: 048
  2. LEVETIRACETAM [Suspect]
     Active Substance: LEVETIRACETAM
     Dosage: 35 MILLIGRAM/KILOGRAM/DAY
     Route: 048
  3. DOMPERIDONE [Concomitant]
     Active Substance: DOMPERIDONE
     Indication: Vomiting
     Dosage: UNK
     Route: 054
  4. DIAZEPAM [Concomitant]
     Active Substance: DIAZEPAM
     Indication: Seizure
     Dosage: 0.45 MG/KG
     Route: 042

REACTIONS (8)
  - Vomiting [Recovering/Resolving]
  - Generalised tonic-clonic seizure [Recovered/Resolved]
  - Partial seizures [Recovering/Resolving]
  - Clonic convulsion [Recovering/Resolving]
  - Somnolence [Unknown]
  - Pyrexia [Unknown]
  - Altered state of consciousness [Unknown]
  - Off label use [Unknown]
